FAERS Safety Report 7869187-2 (Version None)
Quarter: 2011Q4

REPORT INFORMATION
  Report Type: 
  Country: None (occurrence: None)
  Receive Date: 20111028
  Receipt Date: 20101228
  Transmission Date: 20120403
  Serious: No
  Sender: FDA-Public Use
  Company Number: US-AMGEN-USASP2010011914

PATIENT
  Sex: Female

DRUGS (2)
  1. ENBREL [Suspect]
     Indication: ANKYLOSING SPONDYLITIS
     Dosage: 50 MG, QWK
     Dates: start: 20040301
  2. ENBREL [Suspect]
     Indication: PSORIATIC ARTHROPATHY

REACTIONS (6)
  - INJECTION SITE SWELLING [None]
  - INJECTION SITE ERYTHEMA [None]
  - COUGH [None]
  - INJECTION SITE PRURITUS [None]
  - INJECTION SITE REACTION [None]
  - MOBILITY DECREASED [None]
